FAERS Safety Report 16308343 (Version 1)
Quarter: 2019Q2

REPORT INFORMATION
  Report Type: Spontaneous
  Country: US (occurrence: US)
  Receive Date: 20190513
  Receipt Date: 20190513
  Transmission Date: 20190711
  Serious: Yes (Hospitalization)
  Sender: FDA-Public Use
  Company Number: None

PATIENT
  Age: 59 Year
  Sex: Female

DRUGS (5)
  1. ATENOLOL. [Suspect]
     Active Substance: ATENOLOL
  2. CYCLOBENZAPRINE. [Suspect]
     Active Substance: CYCLOBENZAPRINE
  3. HYDROCODONE BITARTRATE AND ACETAMINOPHEN [Suspect]
     Active Substance: ACETAMINOPHEN\HYDROCODONE BITARTRATE
  4. COSENTYX [Suspect]
     Active Substance: SECUKINUMAB
     Indication: PSORIASIS
     Route: 058
     Dates: start: 20190402, end: 20190412
  5. ESTRADIOL. [Suspect]
     Active Substance: ESTRADIOL

REACTIONS (6)
  - Respiratory disorder [None]
  - Respiratory tract infection [None]
  - Pain [None]
  - Adverse drug reaction [None]
  - Inflammation [None]
  - Cardiovascular symptom [None]

NARRATIVE: CASE EVENT DATE: 20190411
